FAERS Safety Report 21646636 (Version 1)
Quarter: 2022Q4

REPORT INFORMATION
  Report Type: Report from Study
  Country: US (occurrence: US)
  Receive Date: 20221127
  Receipt Date: 20221127
  Transmission Date: 20230113
  Serious: Yes (Other)
  Sender: FDA-Public Use
  Company Number: US-JNJFOC-20221147708

PATIENT
  Sex: Female

DRUGS (1)
  1. RIVAROXABAN [Suspect]
     Active Substance: RIVAROXABAN
     Indication: Product used for unknown indication
     Route: 048

REACTIONS (5)
  - Neoplasm malignant [Not Recovered/Not Resolved]
  - Diverticulitis [Not Recovered/Not Resolved]
  - Spinal operation [Unknown]
  - Rib excision [Unknown]
  - Joint prosthesis user [Unknown]
